FAERS Safety Report 8967242 (Version 1)
Quarter: 2012Q4

REPORT INFORMATION
  Report Type: 
  Country: US (occurrence: US)
  Receive Date: 20121214
  Receipt Date: 20121214
  Transmission Date: 20130627
  Serious: No
  Sender: FDA-Public Use
  Company Number: US-GLAXOSMITHKLINE-A0968413A

PATIENT
  Age: 48 Year
  Sex: Female

DRUGS (7)
  1. FLUTICASONE PROPIONATE [Suspect]
     Indication: RHINITIS ALLERGIC
     Dosage: 2SPR Per day
     Route: 045
     Dates: start: 201003
  2. NASACORT [Suspect]
  3. ALLEGRA [Concomitant]
  4. PATANOL [Concomitant]
  5. PATANASE [Concomitant]
  6. MAXALT [Concomitant]
  7. DULERA [Concomitant]

REACTIONS (2)
  - Epistaxis [Not Recovered/Not Resolved]
  - Migraine [Unknown]
